FAERS Safety Report 11419995 (Version 2)
Quarter: 2015Q3

REPORT INFORMATION
  Report Type: Spontaneous
  Country: FI (occurrence: FI)
  Receive Date: 20150826
  Receipt Date: 20150910
  Transmission Date: 20151125
  Serious: Yes (Hospitalization)
  Sender: FDA-Public Use
  Company Number: FI-SA-2015SA116822

PATIENT
  Age: 37 Year
  Sex: Female

DRUGS (8)
  1. CETIMAX [Concomitant]
     Indication: RHINITIS ALLERGIC
     Route: 048
  2. SOLU-MEDROL [Concomitant]
     Active Substance: METHYLPREDNISOLONE SODIUM SUCCINATE
     Indication: PROPHYLAXIS
     Dosage: POWDER AND SOLVENT FOR SOLUTION FOR INJECTION, NOS
     Route: 042
     Dates: start: 20150727, end: 20150729
  3. LEMTRADA [Suspect]
     Active Substance: ALEMTUZUMAB
     Indication: MULTIPLE SCLEROSIS
     Route: 041
     Dates: start: 20150727, end: 20150731
  4. ZOVIRAX [Concomitant]
     Active Substance: ACYCLOVIR
     Route: 048
     Dates: start: 20150727
  5. SOMAC [Concomitant]
     Active Substance: PANTOPRAZOLE SODIUM
     Route: 048
  6. PARA-TABS [Concomitant]
     Active Substance: ACETAMINOPHEN
     Route: 048
  7. DYMISTA [Concomitant]
     Active Substance: AZELASTINE HYDROCHLORIDE\FLUTICASONE PROPIONATE
     Indication: RHINITIS ALLERGIC
     Dosage: 1 DOSE TWICE PER DAY
     Route: 045
  8. SOLU-MEDROL [Concomitant]
     Active Substance: METHYLPREDNISOLONE SODIUM SUCCINATE
     Indication: PROPHYLAXIS
     Dosage: POWDER AND SOLVENT FOR SOLUTION FOR INJECTION, NOS
     Route: 042
     Dates: start: 20150730, end: 20150731

REACTIONS (8)
  - Rash pruritic [Recovered/Resolved]
  - Muscular weakness [Unknown]
  - Multiple sclerosis relapse [Unknown]
  - Gait disturbance [Unknown]
  - Lymphopenia [Unknown]
  - Bradycardia [Recovered/Resolved]
  - Heart rate decreased [Recovered/Resolved]
  - CD4 lymphocytes decreased [Unknown]

NARRATIVE: CASE EVENT DATE: 201507
